FAERS Safety Report 4729448-2 (Version None)
Quarter: 2005Q3

REPORT INFORMATION
  Report Type: 
  Country: None (occurrence: None)
  Receive Date: 20050728
  Receipt Date: 20050725
  Transmission Date: 20060218
  Serious: Yes (Hospitalization)
  Sender: FDA-Public Use
  Company Number: 21-732-2005-M0066

PATIENT
  Sex: Male

DRUGS (1)
  1. VANTAS [Suspect]
     Indication: PROSTATE CANCER
     Dosage: 50 MG/YEAR, SUBCUTANEOUS
     Route: 058
     Dates: start: 20050427

REACTIONS (6)
  - ALANINE AMINOTRANSFERASE INCREASED [None]
  - ASPARTATE AMINOTRANSFERASE INCREASED [None]
  - BLOOD ALKALINE PHOSPHATASE INCREASED [None]
  - BLOOD LACTATE DEHYDROGENASE INCREASED [None]
  - LIVER DISORDER [None]
  - PNEUMONIA [None]
